FAERS Safety Report 4293620-9 (Version None)
Quarter: 2004Q1

REPORT INFORMATION
  Report Type: 
  Country: None (occurrence: None)
  Receive Date: 20040210
  Receipt Date: 20040126
  Transmission Date: 20041129
  Serious: Yes (Death)
  Sender: FDA-Public Use
  Company Number: 02100-JPN-04-0018

PATIENT
  Age: 80 Year
  Sex: Female

DRUGS (3)
  1. CILOSTAZOL [Suspect]
     Indication: ATHEROSCLEROSIS OBLITERANS
     Dosage: 200 MG ORAL
     Route: 048
  2. ANTIHYPERTENSIVE AGENT [Concomitant]
  3. PRECIPITATED CALCIUM CARBONATE [Concomitant]

REACTIONS (4)
  - BLOOD PRESSURE DECREASED [None]
  - CARDIAC FAILURE [None]
  - FLUID OVERLOAD [None]
  - SUDDEN DEATH [None]
